FAERS Safety Report 10024365 (Version 1)
Quarter: 2014Q1

REPORT INFORMATION
  Report Type: Spontaneous
  Country: JP (occurrence: JP)
  Receive Date: 20140320
  Receipt Date: 20140320
  Transmission Date: 20141002
  Serious: Yes (Other)
  Sender: FDA-Public Use
  Company Number: JP-SA-2014SA033979

PATIENT
  Age: 68 Year
  Sex: Male

DRUGS (9)
  1. RIFAMPICIN [Suspect]
     Indication: ATYPICAL MYCOBACTERIAL INFECTION
     Route: 065
     Dates: start: 201203
  2. ETHAMBUTOL [Suspect]
     Indication: ATYPICAL MYCOBACTERIAL INFECTION
     Route: 065
     Dates: start: 201203
  3. CLARITHROMYCIN [Suspect]
     Indication: ATYPICAL MYCOBACTERIAL INFECTION
     Route: 065
     Dates: start: 201203
  4. PREDNISOLONE [Suspect]
     Indication: POLYCHONDRITIS
     Route: 048
     Dates: start: 2010
  5. PREDNISOLONE [Suspect]
     Indication: POLYCHONDRITIS
     Route: 048
     Dates: start: 2010
  6. PREDNISOLONE [Suspect]
     Indication: POLYCHONDRITIS
     Route: 048
     Dates: start: 2010
  7. ADALIMUMAB [Suspect]
     Indication: POLYCHONDRITIS
     Route: 065
  8. ADALIMUMAB [Suspect]
     Indication: POLYCHONDRITIS
     Dosage: 3 TIMES APPROXIMATELY EVERY 2 WEEKS
     Route: 065
  9. TACROLIMUS [Suspect]
     Indication: POLYCHONDRITIS
     Route: 065

REACTIONS (7)
  - Lymphadenopathy mediastinal [Recovering/Resolving]
  - Mycobacterium avium complex infection [Recovering/Resolving]
  - Condition aggravated [Recovering/Resolving]
  - Atypical mycobacterial infection [Recovering/Resolving]
  - Pyrexia [Recovering/Resolving]
  - Fatigue [Recovering/Resolving]
  - Subcutaneous abscess [Recovering/Resolving]
